FAERS Safety Report 11030340 (Version 5)
Quarter: 2016Q4

REPORT INFORMATION
  Report Type: Report from Study
  Country: CA (occurrence: CA)
  Receive Date: 20150415
  Receipt Date: 20161219
  Transmission Date: 20170206
  Serious: Yes (Hospitalization)
  Sender: FDA-Public Use
  Company Number: PHHY2013CA114742

PATIENT
  Age: 64 Year
  Sex: Female

DRUGS (5)
  1. CALCIUM [Concomitant]
     Active Substance: CALCIUM
     Indication: PRODUCT USED FOR UNKNOWN INDICATION
     Route: 065
  2. GLEEVEC [Suspect]
     Active Substance: IMATINIB MESYLATE
     Indication: GASTROINTESTINAL STROMAL TUMOUR
     Dosage: 400 MG, QD
     Route: 048
     Dates: start: 20130503, end: 20150216
  3. BABY ASPIRIN [Concomitant]
     Active Substance: ASPIRIN
     Indication: PRODUCT USED FOR UNKNOWN INDICATION
     Route: 065
  4. CHOLESTEROL [Concomitant]
     Active Substance: CHOLESTEROL
     Indication: PRODUCT USED FOR UNKNOWN INDICATION
     Route: 065
  5. GLEEVEC [Suspect]
     Active Substance: IMATINIB MESYLATE
     Dosage: 400 MG, QD
     Route: 048
     Dates: start: 20150427

REACTIONS (23)
  - Blood potassium decreased [Unknown]
  - Infection [Unknown]
  - Hair texture abnormal [Unknown]
  - Nausea [Recovered/Resolved]
  - Alopecia [Unknown]
  - White blood cell count decreased [Unknown]
  - Malaise [Unknown]
  - Muscle spasms [Unknown]
  - Pyrexia [Unknown]
  - Bladder discomfort [Not Recovered/Not Resolved]
  - Rash [Recovered/Resolved]
  - General physical condition abnormal [Unknown]
  - Dehydration [Unknown]
  - Hair colour changes [Unknown]
  - Diarrhoea [Unknown]
  - Faeces discoloured [Unknown]
  - Fatigue [Recovered/Resolved]
  - Vomiting [Recovered/Resolved]
  - Diarrhoea [Recovered/Resolved]
  - Constipation [Unknown]
  - Abdominal distension [Unknown]
  - Haemoglobin decreased [Unknown]
  - Periorbital oedema [Recovered/Resolved]

NARRATIVE: CASE EVENT DATE: 20150325
